FAERS Safety Report 25949007 (Version 1)
Quarter: 2025Q4

REPORT INFORMATION
  Report Type: Spontaneous
  Country: US (occurrence: US)
  Receive Date: 20251022
  Receipt Date: 20251022
  Transmission Date: 20260117
  Serious: Yes (Hospitalization, Other)
  Sender: BRISTOL-MYERS SQUIBB COMPANY
  Company Number: US-BRISTOL-MYERS SQUIBB COMPANY-2025-143659

PATIENT
  Age: 64 Year
  Sex: Female
  Weight: 44.91 kg

DRUGS (3)
  1. REVLIMID [Suspect]
     Active Substance: LENALIDOMIDE
     Indication: Plasma cell myeloma
  2. DARZALEX FASPRO [Concomitant]
     Active Substance: DARATUMUMAB\HYALURONIDASE-FIHJ
     Indication: Plasma cell myeloma
     Dosage: WEEKLY
     Dates: start: 20250918
  3. DECADRON [Concomitant]
     Active Substance: DEXAMETHASONE
     Indication: Plasma cell myeloma
     Dosage: WEEKLY

REACTIONS (2)
  - Diarrhoea [Recovered/Resolved]
  - Metabolic encephalopathy [Recovered/Resolved]

NARRATIVE: CASE EVENT DATE: 20251011
